FAERS Safety Report 9521729 (Version 2)
Quarter: 2013Q4

REPORT INFORMATION
  Report Type: Report from Study
  Country: IN (occurrence: IN)
  Receive Date: 20130913
  Receipt Date: 20131011
  Transmission Date: 20140711
  Serious: Yes (Hospitalization)
  Sender: FDA-Public Use
  Company Number: PHHY2013IN100529

PATIENT
  Age: 58 Year
  Sex: Female

DRUGS (3)
  1. ACLASTA [Suspect]
     Indication: OSTEOPOROSIS
     Dosage: 5 MG/100 ML/YEAR
     Route: 042
  2. ACLASTA [Suspect]
     Dosage: 5 MG/100 ML/YEAR
     Route: 042
     Dates: start: 20120911
  3. CALCIUM [Concomitant]
     Dosage: UNK

REACTIONS (3)
  - Ankle fracture [Not Recovered/Not Resolved]
  - Pain in extremity [Not Recovered/Not Resolved]
  - Burning sensation [Not Recovered/Not Resolved]
